FAERS Safety Report 5133537-0 (Version None)
Quarter: 2006Q4

REPORT INFORMATION
  Report Type: 
  Country: None (occurrence: None)
  Receive Date: 20061024
  Receipt Date: 20060821
  Transmission Date: 20070319
  Serious: Yes (Other)
  Sender: FDA-Public Use
  Company Number: 2006AC01543

PATIENT
  Age: 29 Year
  Weight: 80 kg

DRUGS (3)
  1. BUPIVACAINE [Suspect]
     Indication: ANAESTHESIA
     Route: 037
  2. SODIUM CHLORIDE [Concomitant]
     Dosage: ADMINISTERED OVER A 24 HOUR PERIOPERATIVE PERIOD
     Route: 042
  3. MIDAZOLAM [Concomitant]

REACTIONS (2)
  - ANAESTHETIC COMPLICATION [None]
  - HEARING IMPAIRED [None]
